FAERS Safety Report 8935840 (Version 1)
Quarter: 2012Q4

REPORT INFORMATION
  Report Type: Report from Study
  Country: DE (occurrence: DE)
  Receive Date: 20121130
  Receipt Date: 20121130
  Transmission Date: 20130627
  Serious: Yes (Hospitalization, Other)
  Sender: FDA-Public Use
  Company Number: DE-BRISTOL-MYERS SQUIBB COMPANY-15218639

PATIENT
  Age: 52 Year
  Sex: Male
  Weight: 67.2 kg

DRUGS (12)
  1. CISPLATIN [Suspect]
     Indication: NON-SMALL CELL LUNG CANCER
     Dosage: 5th infusion 8Jul10
Interrupted on 08Jul2010;106.4mg 4 inf on 29Jul2010
     Route: 042
     Dates: start: 20100528
  2. NECITUMUMAB [Suspect]
     Indication: NON-SMALL CELL LUNG CANCER
     Dosage: 800mg liq,2in 3wk ; 400mg;6Inf 300mg 05Aug2010
     Route: 042
     Dates: start: 20100528
  3. ALIMTA [Suspect]
     Indication: NON-SMALL CELL LUNG CANCER
     Dosage: 5th infusion 8Jul10
Interrupted on 08Jul2010; Also taken 800mg;712.5mg 4 inf 29Jul2010
     Route: 042
     Dates: start: 20100528
  4. BUDESONIDE [Concomitant]
     Indication: DYSPNOEA
     Dates: start: 20100330
  5. ENOXAPARIN SODIUM [Concomitant]
     Indication: ARTERITIS
     Dosage: ongoing
     Dates: start: 20100306
  6. APREPITANT [Concomitant]
     Indication: NAUSEA
     Dosage: 28May10 to 30May10.
18Jun10 to 19Jun10
     Dates: start: 20100529, end: 20100619
  7. DEXAMETHASONE [Concomitant]
     Indication: NAUSEA
     Dosage: 29May10 to 31May10.
18Jun10 to 20Jun10
     Dates: start: 20100529, end: 20100620
  8. FUROSEMIDE [Concomitant]
     Indication: WEIGHT INCREASED
     Dates: start: 20100529, end: 20100529
  9. METOCLOPRAMIDE [Concomitant]
     Indication: NAUSEA
     Dates: start: 20100616
  10. NUTRIFLEX [Concomitant]
     Dates: start: 20100715, end: 20100719
  11. POTASSIUM CHLORIDE [Concomitant]
     Dates: start: 20100715, end: 20100715
  12. PANTOPRAZOLE [Concomitant]
     Dates: start: 20100716

REACTIONS (6)
  - Pneumatosis intestinalis [Unknown]
  - Leukopenia [Unknown]
  - Staphylococcal infection [Unknown]
  - Vomiting [Recovered/Resolved]
  - Hypomagnesaemia [Unknown]
  - Hypocalcaemia [Unknown]
